FAERS Safety Report 17841639 (Version 4)
Quarter: 2020Q4

REPORT INFORMATION
  Report Type: Report from Study
  Country: GB (occurrence: GB)
  Receive Date: 20200529
  Receipt Date: 20201015
  Transmission Date: 20210113
  Serious: Yes (Other)
  Sender: FDA-Public Use
  Company Number: GB-SAMSUNG BIOEPIS-SB-2020-17999

PATIENT
  Sex: Female

DRUGS (1)
  1. IMRALDI [Suspect]
     Active Substance: ADALIMUMAB
     Indication: ARTHRITIS
     Route: 058

REACTIONS (13)
  - Decreased appetite [Unknown]
  - Anxiety [Unknown]
  - Depressed mood [Unknown]
  - Sleep disorder [Unknown]
  - Fibromyalgia [Unknown]
  - Pain [Unknown]
  - Malaise [Unknown]
  - Weight decreased [Unknown]
  - Arthralgia [Unknown]
  - Fatigue [Unknown]
  - Rheumatoid arthritis [Unknown]
  - Hypothyroidism [Unknown]
  - Product use in unapproved indication [Unknown]
